FAERS Safety Report 7051313-9 (Version None)
Quarter: 2010Q4

REPORT INFORMATION
  Report Type: 
  Country: None (occurrence: None)
  Receive Date: 20101013
  Receipt Date: 20100928
  Transmission Date: 20110411
  Serious: Yes (Hospitalization, Other)
  Sender: FDA-Public Use
  Company Number: 012299

PATIENT
  Sex: Female
  Weight: 87 kg

DRUGS (4)
  1. CIMZIA [Suspect]
     Indication: CROHN'S DISEASE
     Dosage: (400 MG 1X/MONTH SUBCUTANEOUS)
     Route: 058
     Dates: start: 20091117
  2. BUDESONIDE [Concomitant]
  3. MERCAPTOPURINE [Concomitant]
  4. AZATHIOPRINE [Concomitant]

REACTIONS (2)
  - ABSCESS [None]
  - WOUND INFECTION [None]
